FAERS Safety Report 16928815 (Version 1)
Quarter: 2019Q4

REPORT INFORMATION
  Report Type: Spontaneous
  Country: IT (occurrence: IT)
  Receive Date: 20191017
  Receipt Date: 20191017
  Transmission Date: 20200122
  Serious: Yes (Other)
  Sender: FDA-Public Use
  Company Number: IT-TEVA-2019-IT-1122327

PATIENT
  Age: 56 Year
  Sex: Male
  Weight: 65 kg

DRUGS (6)
  1. FLUOROURACIL TEVA [Suspect]
     Active Substance: FLUOROURACIL
     Indication: PANCREATIC CARCINOMA
     Route: 040
     Dates: start: 20190401, end: 20190724
  2. RANITIDINE HYDROCHLORIDE. [Concomitant]
     Active Substance: RANITIDINE HYDROCHLORIDE
  3. FLUOROURACIL TEVA [Suspect]
     Active Substance: FLUOROURACIL
     Route: 042
     Dates: start: 20190401, end: 20190724
  4. OXALIPLATINO SUN PHARMACEUTICAL INDUSTRIES EUROPE [Suspect]
     Active Substance: OXALIPLATIN
     Indication: PANCREATIC CARCINOMA
     Route: 042
     Dates: start: 20190401, end: 20190724
  5. IRINOTECAN KABI [Suspect]
     Active Substance: IRINOTECAN
     Indication: PANCREATIC CARCINOMA
     Route: 042
     Dates: start: 20190401, end: 20190724
  6. DEXAMETHASONE. [Concomitant]
     Active Substance: DEXAMETHASONE

REACTIONS (3)
  - Leukopenia [Recovering/Resolving]
  - Thrombocytopenia [Recovering/Resolving]
  - Neutropenia [Recovering/Resolving]

NARRATIVE: CASE EVENT DATE: 20190925
